FAERS Safety Report 21626522 (Version 1)
Quarter: 2022Q4

REPORT INFORMATION
  Report Type: Spontaneous
  Country: US (occurrence: None)
  Receive Date: 20221122
  Receipt Date: 20221122
  Transmission Date: 20230113
  Serious: No
  Sender: FDA-Public Use
  Company Number: US-ROCHE-3152407

PATIENT
  Sex: Male
  Weight: 93.978 kg

DRUGS (18)
  1. LUCENTIS [Suspect]
     Active Substance: RANIBIZUMAB
     Indication: Neovascular age-related macular degeneration
     Route: 042
  2. MINERALS\VITAMINS [Concomitant]
     Active Substance: MINERALS\VITAMINS
     Route: 048
  3. VITAMIN D3 [Concomitant]
     Active Substance: CHOLECALCIFEROL
  4. DOXYCYCLINE HYCLATE [Concomitant]
     Active Substance: DOXYCYCLINE HYCLATE
  5. LEVOTHYROXINE [Concomitant]
     Active Substance: LEVOTHYROXINE
     Route: 048
  6. NIFEDIPINE [Concomitant]
     Active Substance: NIFEDIPINE
     Indication: Hypertension
  7. LISINOPRIL [Concomitant]
     Active Substance: LISINOPRIL
     Indication: Hypertension
     Route: 048
  8. ATENOLOL [Concomitant]
     Active Substance: ATENOLOL
     Indication: Hypertension
     Route: 048
  9. MELATONIN [Concomitant]
     Active Substance: MELATONIN
     Route: 048
  10. ASPIRIN [Concomitant]
     Active Substance: ASPIRIN
     Route: 048
  11. FAMOTIDINE [Concomitant]
     Active Substance: FAMOTIDINE
     Route: 048
  12. ACETYLCYSTEINE [Concomitant]
     Active Substance: ACETYLCYSTEINE
     Route: 048
  13. QUERCETIN [Concomitant]
     Active Substance: QUERCETIN
     Route: 048
  14. LORATADINE [Concomitant]
     Active Substance: LORATADINE
     Route: 048
  15. CIPROFLOXACIN [Concomitant]
     Active Substance: CIPROFLOXACIN
     Route: 047
  16. AZELASTINE [Concomitant]
     Active Substance: AZELASTINE
     Route: 047
  17. METFORMIN [Concomitant]
     Active Substance: METFORMIN HYDROCHLORIDE
  18. ZINC [Concomitant]
     Active Substance: ZINC
     Route: 048

REACTIONS (2)
  - Fatigue [Not Recovered/Not Resolved]
  - Eye pain [Not Recovered/Not Resolved]
